FAERS Safety Report 9958941 (Version 1)
Quarter: 2014Q1

REPORT INFORMATION
  Report Type: Report from Study
  Country: US (occurrence: US)
  Receive Date: 20140305
  Receipt Date: 20140305
  Transmission Date: 20141002
  Serious: No
  Sender: FDA-Public Use
  Company Number: US-ABBVIE-13P-163-1103927-00

PATIENT
  Sex: Female

DRUGS (9)
  1. HUMIRA [Suspect]
     Indication: PSORIATIC ARTHROPATHY
  2. SAVELLA [Concomitant]
     Indication: FIBROMYALGIA
  3. NAPROXEN [Concomitant]
     Indication: PSORIATIC ARTHROPATHY
  4. TRAMADOL [Concomitant]
     Indication: BACK PAIN
  5. FOLIC ACID [Concomitant]
     Indication: PRODUCT USED FOR UNKNOWN INDICATION
  6. METHOTREXATE [Concomitant]
     Indication: PSORIATIC ARTHROPATHY
     Dosage: EVERY MONDAY
  7. AMBIEN [Concomitant]
     Indication: INSOMNIA
     Dosage: EVERY HS
  8. BACLOFEN [Concomitant]
     Indication: MUSCLE RELAXANT THERAPY
     Dosage: EVERY NIGHT
  9. GABAPENTIN [Concomitant]
     Indication: NEURALGIA

REACTIONS (1)
  - Injection site pain [Not Recovered/Not Resolved]
